FAERS Safety Report 5194828-0 (Version None)
Quarter: 2006Q4

REPORT INFORMATION
  Report Type: 
  Country: None (occurrence: None)
  Receive Date: 20061227
  Receipt Date: 20061208
  Transmission Date: 20070319
  Serious: Yes (Other)
  Sender: FDA-Public Use
  Company Number: CERZ-11435

PATIENT
  Age: 64 Year
  Sex: Male

DRUGS (1)
  1. CEREZYME [Suspect]
     Indication: GAUCHER'S DISEASE
     Dates: start: 20020101

REACTIONS (2)
  - OPTIC NEUROPATHY [None]
  - PAIN IN EXTREMITY [None]
